FAERS Safety Report 4450261-8 (Version None)
Quarter: 2004Q3

REPORT INFORMATION
  Report Type: 
  Country: None (occurrence: None)
  Receive Date: 20040914
  Receipt Date: 20040902
  Transmission Date: 20050211
  Serious: No
  Sender: FDA-Public Use
  Company Number: 2004UW17140

PATIENT
  Age: 77 Year
  Sex: Female
  Weight: 65.7716 kg

DRUGS (3)
  1. FASLODEX [Suspect]
     Indication: BREAST CANCER
     Dosage: 50 MG/ML IM
     Route: 030
     Dates: start: 20040706
  2. EXCEDRIN (MIGRAINE) [Concomitant]
  3. IBUPROFEN [Concomitant]

REACTIONS (3)
  - BACK PAIN [None]
  - NAUSEA [None]
  - PLEURAL EFFUSION [None]
